FAERS Safety Report 5700908-0 (Version None)
Quarter: 2008Q2

REPORT INFORMATION
  Report Type: 
  Country: None (occurrence: None)
  Receive Date: 20080410
  Receipt Date: 20080403
  Transmission Date: 20081010
  Serious: Yes (Other)
  Sender: FDA-Public Use
  Company Number: B0441803A

PATIENT
  Age: 33 Year
  Sex: Male

DRUGS (10)
  1. BLINDED TRIAL MEDICATION [Suspect]
     Indication: HIV INFECTION
     Route: 048
     Dates: end: 20061013
  2. COMBIVIR [Suspect]
     Indication: HIV INFECTION
     Dosage: 1TAB TWICE PER DAY
     Dates: end: 20061013
  3. EFAVIRENZ [Suspect]
     Indication: HIV INFECTION
     Dosage: 600MG PER DAY
     Dates: end: 20061013
  4. PYRAZINAMIDE [Suspect]
     Dates: end: 20061004
  5. ETHAMBUTHOL [Suspect]
     Dates: end: 20061004
  6. FLUCONAZOLE [Suspect]
  7. RIFAMPICIN [Suspect]
  8. RIMACTAZID [Suspect]
  9. SULFOTRIM [Concomitant]
     Dates: end: 20061013
  10. PRIMPERAN INJ [Concomitant]

REACTIONS (3)
  - HEPATITIS [None]
  - PRURITUS [None]
  - VOMITING [None]
